FAERS Safety Report 22008182 (Version 2)
Quarter: 2023Q1

REPORT INFORMATION
  Report Type: Spontaneous
  Country: US (occurrence: US)
  Receive Date: 20230218
  Receipt Date: 20230327
  Transmission Date: 20230417
  Serious: No
  Sender: FDA-Public Use
  Company Number: US-ELI_LILLY_AND_COMPANY-US202302004226

PATIENT
  Sex: Female

DRUGS (2)
  1. FORTEO [Suspect]
     Active Substance: TERIPARATIDE
     Indication: Osteoporotic fracture
     Dosage: 20 UG, UNKNOWN
     Route: 065
     Dates: start: 20220331
  2. PROLIA [Concomitant]
     Active Substance: DENOSUMAB
     Indication: Bone density decreased

REACTIONS (4)
  - Myasthenia gravis [Unknown]
  - Malaise [Unknown]
  - Incorrect product administration duration [Unknown]
  - Bone pain [Unknown]
